FAERS Safety Report 7442926-0 (Version None)
Quarter: 2011Q2

REPORT INFORMATION
  Report Type: 
  Country: None (occurrence: None)
  Receive Date: 20110425
  Receipt Date: 20110425
  Transmission Date: 20111010
  Serious: Yes (Death)
  Sender: FDA-Public Use
  Company Number: None

PATIENT
  Age: 86 Year
  Sex: Female

DRUGS (5)
  1. OMEPRAZOLE [Concomitant]
  2. LEVOTHROID [Concomitant]
  3. PROCHLORPERAZINE TAB [Concomitant]
  4. EPOETIN [Concomitant]
  5. REVLIMID [Suspect]
     Indication: MULTIPLE MYELOMA
     Dosage: REVLIMID 5 MG DAILY ORALLY
     Route: 048
     Dates: start: 20100801

REACTIONS (2)
  - MULTIPLE MYELOMA [None]
  - CONDITION AGGRAVATED [None]
